FAERS Safety Report 8158023-5 (Version None)
Quarter: 2012Q1

REPORT INFORMATION
  Report Type: 
  Country: None (occurrence: None)
  Receive Date: 20120222
  Receipt Date: 20120213
  Transmission Date: 20120608
  Serious: Yes (Other)
  Sender: FDA-Public Use
  Company Number: PHHY2012FR013138

PATIENT
  Age: 41 Year
  Sex: Female

DRUGS (4)
  1. CALCIUM [Concomitant]
  2. LEVOTHYROXINE SODIUM [Concomitant]
     Dosage: UNK
     Dates: start: 20100101
  3. LEVOTHYROXINE SODIUM [Concomitant]
     Dosage: 125 UG, DAILY
     Dates: start: 20120111
  4. TEGRETOL [Suspect]
     Indication: BIPOLAR DISORDER
     Dosage: 600 MG, DAILY
     Route: 048
     Dates: start: 20090101

REACTIONS (5)
  - BLOOD PRESSURE FLUCTUATION [None]
  - MALAISE [None]
  - BLOOD CALCIUM DECREASED [None]
  - HEART RATE DECREASED [None]
  - DIZZINESS [None]
